FAERS Safety Report 9779737 (Version 4)
Quarter: 2014Q1

REPORT INFORMATION
  Report Type: Report from Study
  Country: CA (occurrence: CA)
  Receive Date: 20131223
  Receipt Date: 20140122
  Transmission Date: 20141002
  Serious: Yes (Hospitalization)
  Sender: FDA-Public Use
  Company Number: CA-MERCK-1312CAN010359

PATIENT
  Age: 35 Year
  Sex: Female
  Weight: 46.1 kg

DRUGS (18)
  1. VINTAFOLIDE [Suspect]
     Indication: OVARIAN CANCER
     Dosage: 2.5 MG ON DAYS 1, 3, 5,15,17,19
     Route: 042
     Dates: start: 20131021, end: 20131206
  2. PEGYLATED LIPOSOMAL DOXORUBICIN [Suspect]
     Indication: OVARIAN CANCER
     Dosage: 50 MG/M2, 1 IN 28 DAYS
     Route: 042
     Dates: start: 20131021, end: 20131118
  3. EC20-FOLATE(+)TECHNETIUM CHELATING AGENT [Suspect]
     Indication: SINGLE PHOTON EMISSION COMPUTERISED TOMOGRAM
     Dosage: 27 MILLICURIES, ONCE
     Route: 042
     Dates: start: 20131002, end: 20131002
  4. FOLIC ACID [Suspect]
     Indication: SINGLE PHOTON EMISSION COMPUTERISED TOMOGRAM
     Dosage: 0.5 MG, ONCE
     Route: 042
     Dates: start: 20131002, end: 20131002
  5. TEVA VENLAFAXINE [Suspect]
     Indication: HOT FLUSH
     Dosage: 37.5 MG, QD
     Route: 048
     Dates: start: 20130228
  6. DEXAMETHASONE [Suspect]
     Indication: PROPHYLAXIS OF NAUSEA AND VOMITING
     Dosage: 20 MG, PRE CHEMO
     Route: 048
     Dates: start: 20131021
  7. DEXAMETHASONE [Suspect]
     Dosage: 8 MG, POST CHEMO
     Route: 048
     Dates: start: 20131027
  8. GRANISETRON [Suspect]
     Indication: PROPHYLAXIS OF NAUSEA AND VOMITING
     Dosage: 2 MG, PRE CHEMO
     Route: 048
     Dates: start: 20131021
  9. GRANISETRON [Suspect]
     Dosage: 2 MG, POST CHEMO
     Route: 048
     Dates: start: 20131022
  10. WARFARIN SODIUM [Concomitant]
     Indication: PULMONARY EMBOLISM
     Dosage: 4 MG
     Route: 048
     Dates: start: 201203
  11. VITAMIN B1 [Concomitant]
     Indication: VITAMIN SUPPLEMENTATION
     Dosage: 100 MG
     Route: 048
     Dates: start: 201308
  12. VITAMIN B2 [Concomitant]
     Indication: VITAMIN SUPPLEMENTATION
     Dosage: 100 MG
     Route: 048
     Dates: start: 201308
  13. VITAMIN B12 [Concomitant]
     Indication: VITAMIN SUPPLEMENTATION
     Dosage: 100 MG
     Route: 048
     Dates: start: 201308
  14. VITAMIN B6 [Concomitant]
     Indication: NEUROPATHY PERIPHERAL
     Dosage: 100 MG
     Route: 048
     Dates: start: 201308
  15. VITAMIN C [Concomitant]
     Indication: VITAMIN SUPPLEMENTATION
     Dosage: 1000 MG
     Route: 048
     Dates: start: 20131021
  16. CALMAG D [Concomitant]
     Indication: SUPPLEMENTATION THERAPY
     Dosage: 333/167/5 MG
     Route: 048
     Dates: start: 201310
  17. MACROBID (NITROFURANTOIN) [Concomitant]
     Indication: URINARY TRACT INFECTION
     Dosage: 100 MG
     Route: 048
     Dates: start: 20131107, end: 20131114
  18. EUCERIN LOTION [Concomitant]
     Indication: PALMAR-PLANTAR ERYTHRODYSAESTHESIA SYNDROME
     Dosage: 200 GM
     Route: 061
     Dates: start: 20131115

REACTIONS (1)
  - Pneumonia [Recovered/Resolved]
